FAERS Safety Report 16656598 (Version 1)
Quarter: 2019Q3

REPORT INFORMATION
  Report Type: Spontaneous
  Country: US (occurrence: US)
  Receive Date: 20190618
  Receipt Date: 20190618
  Transmission Date: 20191004
  Serious: No
  Sender: FDA-Public Use
  Company Number: None

PATIENT
  Age: 27 Year
  Sex: Female

DRUGS (1)
  1. VIGABATRIN 500MG [Suspect]
     Active Substance: VIGABATRIN
     Indication: EPILEPSY
     Route: 048
     Dates: start: 20190503

REACTIONS (3)
  - Dizziness [None]
  - Fatigue [None]
  - Somnolence [None]

NARRATIVE: CASE EVENT DATE: 20190510
